FAERS Safety Report 17376239 (Version 1)
Quarter: 2020Q1

REPORT INFORMATION
  Report Type: Spontaneous
  Country: US (occurrence: US)
  Receive Date: 20200206
  Receipt Date: 20200206
  Transmission Date: 20200409
  Serious: No
  Sender: FDA-Public Use
  Company Number: US-ALLERGAN-1904518US

PATIENT
  Age: 65 Year
  Sex: Female

DRUGS (3)
  1. LEVOTHYROXINE. [Concomitant]
     Active Substance: LEVOTHYROXINE
  2. VITAMIN D NOS [Concomitant]
     Active Substance: VITAMIN D NOS
  3. URSODEOXYCHOLIC ACID - BP [Suspect]
     Active Substance: URSODIOL
     Indication: PRIMARY BILIARY CHOLANGITIS
     Dosage: 300 MG, UNK
     Route: 048
     Dates: start: 2006

REACTIONS (1)
  - Wrong technique in product usage process [Unknown]

NARRATIVE: CASE EVENT DATE: 2006
